FAERS Safety Report 6987228-1 (Version None)
Quarter: 2010Q3

REPORT INFORMATION
  Report Type: 
  Country: None (occurrence: None)
  Receive Date: 20100916
  Receipt Date: 20100908
  Transmission Date: 20110219
  Serious: Yes (Life-Threatening, Other)
  Sender: FDA-Public Use
  Company Number: AU-ROXANE LABORATORIES, INC.-2010-RO-01197RO

PATIENT
  Age: 30 Year
  Sex: Male

DRUGS (4)
  1. SERTRALINE HYDROCHLORIDE [Suspect]
     Indication: MAJOR DEPRESSION
  2. QUETIAPINE [Suspect]
     Indication: SLEEP DISORDER
     Dosage: 50 MG
  3. MIRTAZAPINE [Suspect]
     Indication: MAJOR DEPRESSION
     Dosage: 15 MG
  4. MIRTAZAPINE [Suspect]
     Dosage: 30 MG

REACTIONS (2)
  - DELIRIUM [None]
  - SEROTONIN SYNDROME [None]
